FAERS Safety Report 9203116 (Version 3)
Quarter: 2013Q4

REPORT INFORMATION
  Report Type: Spontaneous
  Country: GB (occurrence: None)
  Receive Date: 20130328
  Receipt Date: 20131008
  Transmission Date: 20140711
  Serious: Yes (Hospitalization, Other)
  Sender: FDA-Public Use
  Company Number: AUR-APL-2013-02503

PATIENT
  Age: 61 Year
  Sex: Female

DRUGS (8)
  1. SERTRALINE [Suspect]
     Indication: PRODUCT USED FOR UNKNOWN INDICATION
     Dosage: 180 MG (90 MG, 2 IN 1 D), ORAL STOPPED
     Route: 048
  2. ASPIRIN (ACETYLSALICYLIC ACID) [Suspect]
     Indication: PRODUCT USED FOR UNKNOWN INDICATION
     Dosage: 75 MG (75 MG, 1 IN 1 D), ORAL  STOPPED?
     Route: 048
  3. TICAGRELOR (TICAGRELOR) [Suspect]
     Indication: PRODUCT USED FOR UNKNOWN INDICATION
     Dosage: 180 MG (90 MG, 2 IN 1 D), ORAL  STOPPED
     Route: 048
  4. ATORVASTATIN (ATORVASTATIN) [Concomitant]
  5. BISOPROLOL (BISOPROLOL) [Concomitant]
  6. LANSOPRAZOLE (LANSOPRAZOLE) [Concomitant]
  7. RAMIPRIL (RAMIPRIL) [Suspect]
  8. VENLAFAXINE (VENLAFAXINE) [Suspect]

REACTIONS (7)
  - Decreased appetite [None]
  - Dyspepsia [None]
  - Abdominal tenderness [None]
  - Diarrhoea [None]
  - Weight decreased [None]
  - Faeces discoloured [None]
  - Haemoglobin decreased [None]
